FAERS Safety Report 10530514 (Version 2)
Quarter: 2014Q4

REPORT INFORMATION
  Report Type: Spontaneous
  Country: JP (occurrence: JP)
  Receive Date: 20141021
  Receipt Date: 20141125
  Transmission Date: 20150528
  Serious: Yes (Hospitalization)
  Sender: FDA-Public Use
  Company Number: JP-SA-2014SA142036

PATIENT
  Age: 55 Year
  Sex: Male

DRUGS (2)
  1. FLUDARABINE PHOSPHATE. [Suspect]
     Active Substance: FLUDARABINE PHOSPHATE
     Indication: HYPOPHARYNGEAL CANCER
     Route: 065
  2. RITUXIMAB [Suspect]
     Active Substance: RITUXIMAB
     Indication: HYPOPHARYNGEAL CANCER
     Route: 065

REACTIONS (3)
  - Leukopenia [Recovering/Resolving]
  - Acute promyelocytic leukaemia [Recovering/Resolving]
  - Platelet count decreased [Recovering/Resolving]
